FAERS Safety Report 24789652 (Version 1)
Quarter: 2024Q4

REPORT INFORMATION
  Report Type: Spontaneous
  Country: US (occurrence: None)
  Receive Date: 20241229
  Receipt Date: 20241229
  Transmission Date: 20250115
  Serious: Yes (Disabling)
  Sender: Public
  Company Number: None

PATIENT
  Age: 59 Year
  Sex: Female
  Weight: 74.25 kg

DRUGS (7)
  1. PREGABALIN [Suspect]
     Active Substance: PREGABALIN
     Indication: Post herpetic neuralgia
     Dosage: OTHER QUANTITY : 1 CAPSULE(S);?FREQUENCY : TWICE A DAY;?
     Route: 048
     Dates: start: 20231004
  2. Progesterone 100 mg + Estradiol.5 mg [Concomitant]
  3. Vitamin D3 + K2 [Concomitant]
  4. VITAMIN B COMPLEX [Concomitant]
     Active Substance: CYANOCOBALAMIN\DEXPANTHENOL\NIACINAMIDE\PYRIDOXINE HYDROCHLORIDE\RIBOFLAVIN 5^-PHOSPHATE SODIUM\THIA
  5. LYSINE [Concomitant]
     Active Substance: LYSINE
  6. OMEGA 3 [Concomitant]
     Active Substance: CAPSAICIN
  7. Glucosamine + Chondroitin [Concomitant]

REACTIONS (10)
  - Drug ineffective [None]
  - Tremor [None]
  - Dyskinesia [None]
  - Weight increased [None]
  - Pruritus [None]
  - Neuralgia [None]
  - Brain fog [None]
  - Vision blurred [None]
  - Memory impairment [None]
  - Dizziness [None]

NARRATIVE: CASE EVENT DATE: 20231005
